FAERS Safety Report 9482709 (Version 1)
Quarter: 2013Q3

REPORT INFORMATION
  Report Type: Spontaneous
  Country: TR (occurrence: TR)
  Receive Date: 20130828
  Receipt Date: 20130828
  Transmission Date: 20140515
  Serious: Yes (Hospitalization)
  Sender: FDA-Public Use
  Company Number: TR-ROXANE LABORATORIES, INC.-2013-RO-01450RO

PATIENT
  Age: 28 Year
  Sex: Male

DRUGS (5)
  1. MYCOPHENOLATE MOFETIL [Suspect]
     Indication: RENAL TRANSPLANT
     Dosage: 1000 MG
  2. COLCHICINE [Suspect]
     Indication: FAMILIAL MEDITERRANEAN FEVER
  3. DELTACORTYL [Suspect]
     Indication: RENAL TRANSPLANT
     Dosage: 5 MG
  4. TACROLIMUS [Suspect]
     Indication: RENAL TRANSPLANT
     Dosage: 3 MG
  5. L-THYROXINE [Suspect]
     Dosage: 100 MCG

REACTIONS (2)
  - Posterior reversible encephalopathy syndrome [Recovered/Resolved]
  - Ascariasis [Unknown]
